FAERS Safety Report 10379725 (Version 1)
Quarter: 2014Q3

REPORT INFORMATION
  Report Type: Spontaneous
  Country: US (occurrence: US)
  Receive Date: 20140812
  Receipt Date: 20140812
  Transmission Date: 20150326
  Serious: Yes (Other)
  Sender: FDA-Public Use
  Company Number: US-TEVA-500310USA

PATIENT
  Age: 46 Year
  Sex: Male

DRUGS (1)
  1. COPAXONE [Suspect]
     Active Substance: GLATIRAMER ACETATE
     Indication: MULTIPLE SCLEROSIS
     Dates: start: 20140725

REACTIONS (8)
  - Adverse event [Unknown]
  - Malaise [Unknown]
  - Nausea [Unknown]
  - Pyrexia [Unknown]
  - Blood glucose increased [Unknown]
  - Chills [Unknown]
  - Muscle disorder [Unknown]
  - Feeling hot [Unknown]

NARRATIVE: CASE EVENT DATE: 20140801
